FAERS Safety Report 9738948 (Version 2)
Quarter: 2013Q4

REPORT INFORMATION
  Report Type: Spontaneous
  Country: JP (occurrence: JP)
  Receive Date: 20131209
  Receipt Date: 20131209
  Transmission Date: 20140711
  Serious: Yes (Hospitalization)
  Sender: FDA-Public Use
  Company Number: PHHY2013JP113628

PATIENT
  Age: 80 Year
  Sex: Female

DRUGS (1)
  1. LOPRESOR [Suspect]
     Dosage: 20 MG, DAILY IN 2 DIVIDED DOSES
     Route: 048

REACTIONS (1)
  - Back pain [Unknown]
